FAERS Safety Report 18163557 (Version 1)
Quarter: 2020Q3

REPORT INFORMATION
  Report Type: Spontaneous
  Country: JP (occurrence: JP)
  Receive Date: 20200818
  Receipt Date: 20200818
  Transmission Date: 20201103
  Serious: Yes (Hospitalization, Other)
  Sender: FDA-Public Use
  Company Number: JP-009507513-2008JPN001749

PATIENT
  Age: 9 Decade
  Sex: Female

DRUGS (1)
  1. GLACTIV [Suspect]
     Active Substance: SITAGLIPTIN
     Indication: PRODUCT USED FOR UNKNOWN INDICATION
     Dosage: 50 MG
     Route: 048
     Dates: start: 201807

REACTIONS (2)
  - Dysphagia [Unknown]
  - Brain stem infarction [Unknown]

NARRATIVE: CASE EVENT DATE: 2020
